FAERS Safety Report 6668674-2 (Version None)
Quarter: 2010Q2

REPORT INFORMATION
  Report Type: 
  Country: None (occurrence: None)
  Receive Date: 20100406
  Receipt Date: 20100326
  Transmission Date: 20101027
  Serious: Yes (Other)
  Sender: FDA-Public Use
  Company Number: PHHY2010CA04981

PATIENT
  Sex: Male

DRUGS (2)
  1. SANDOSTATIN LAR [Suspect]
     Indication: PANCREATIC NEUROENDOCRINE TUMOUR
     Dosage: 30 MG, EVERY 4 WEEKS
     Route: 030
     Dates: start: 20030901
  2. EVEROLIMUS [Concomitant]

REACTIONS (4)
  - CHEST DISCOMFORT [None]
  - EJECTION FRACTION DECREASED [None]
  - PALPITATIONS [None]
  - RASH [None]
